FAERS Safety Report 20849872 (Version 1)
Quarter: 2022Q2

REPORT INFORMATION
  Report Type: Spontaneous
  Country: US (occurrence: None)
  Receive Date: 20220518
  Receipt Date: 20220518
  Transmission Date: 20220721
  Serious: Yes (Other)
  Sender: FDA-Public Use
  Company Number: None

PATIENT
  Sex: Female
  Weight: 91.63 kg

DRUGS (2)
  1. ZEJULA [Suspect]
     Active Substance: NIRAPARIB
     Indication: Ovarian cancer
     Dosage: FREQUENCY : DAILY;?
     Route: 048
     Dates: start: 202109
  2. METOPROLOL [Concomitant]
     Active Substance: METOPROLOL

REACTIONS (13)
  - Vertigo [None]
  - Vision blurred [None]
  - Diplopia [None]
  - Vitreous floaters [None]
  - Photopsia [None]
  - Gastrointestinal inflammation [None]
  - Blood urea increased [None]
  - Blood alkaline phosphatase increased [None]
  - Blood bilirubin decreased [None]
  - Arthralgia [None]
  - Myalgia [None]
  - Heart rate increased [None]
  - Anion gap increased [None]
